FAERS Safety Report 5334015-6 (Version None)
Quarter: 2007Q2

REPORT INFORMATION
  Report Type: 
  Country: None (occurrence: None)
  Receive Date: 20070524
  Receipt Date: 20070518
  Transmission Date: 20071010
  Serious: Yes (Death)
  Sender: FDA-Public Use
  Company Number: US-BRISTOL-MYERS SQUIBB COMPANY-13788542

PATIENT
  Age: 87 Year
  Sex: Female

DRUGS (1)
  1. COUMADIN [Suspect]

REACTIONS (4)
  - ABDOMINAL PAIN [None]
  - ATRIAL FIBRILLATION [None]
  - DEMENTIA ALZHEIMER'S TYPE [None]
  - VAGINAL HAEMORRHAGE [None]
